FAERS Safety Report 5862038-7 (Version None)
Quarter: 2008Q3

REPORT INFORMATION
  Report Type: 
  Country: None (occurrence: None)
  Receive Date: 20080826
  Receipt Date: 20080822
  Transmission Date: 20090109
  Serious: Yes (Disabling, Other)
  Sender: FDA-Public Use
  Company Number: GXKR2008DE07850

PATIENT
  Sex: Male

DRUGS (2)
  1. PREDNISOLONE [Suspect]
     Indication: POLYARTHRITIS
     Dosage: 4-8 MG, ORAL
     Route: 048
  2. RISEDRONIC  ACID (RISEDRONIC ACID) [Suspect]
     Indication: OSTEOPOROSIS
     Dosage: 35 MG, QW, ORAL
     Route: 048
     Dates: start: 20040101

REACTIONS (1)
  - OSTEONECROSIS [None]
